FAERS Safety Report 24259055 (Version 1)
Quarter: 2024Q3

REPORT INFORMATION
  Report Type: Spontaneous
  Country: FR (occurrence: FR)
  Receive Date: 20240828
  Receipt Date: 20240828
  Transmission Date: 20241017
  Serious: Yes (Hospitalization)
  Sender: FRESENIUS KABI
  Company Number: None

PATIENT
  Age: 70 Year
  Sex: Female

DRUGS (10)
  1. PACLITAXEL [Suspect]
     Active Substance: PACLITAXEL
     Indication: Invasive ductal breast carcinoma
     Route: 042
     Dates: start: 20240802, end: 20240802
  2. SOLUPRED 20 mg, orodispersible tablet [Concomitant]
     Indication: Product used for unknown indication
     Route: 048
  3. FOLIC ACID [Concomitant]
     Active Substance: FOLIC ACID
     Indication: Vitamin supplementation
     Route: 048
  4. OXYCONTIN LP 15 mg, extended-release film-coated tablet [Concomitant]
     Indication: Pain
     Route: 048
  5. YUFLYMA 40 mg, solution for injection in pre-filled pen [Concomitant]
     Indication: Product used for unknown indication
     Route: 058
     Dates: end: 20240726
  6. EZETIMIBE [Concomitant]
     Active Substance: EZETIMIBE
     Indication: Dyslipidaemia
     Route: 048
  7. NALOXEGOL OXALATE [Concomitant]
     Active Substance: NALOXEGOL OXALATE
     Indication: Constipation
     Route: 048
  8. SEROPLEX 5 mg, film-coated tablet [Concomitant]
     Indication: Depression
     Route: 048
  9. OXYCODONE HYDROCHLORIDE [Concomitant]
     Active Substance: OXYCODONE HYDROCHLORIDE
     Indication: Pain
     Route: 048
  10. METOJECT 12,5 mg/0,25 ml, solution for injection in pre-filled pen [Concomitant]
     Indication: Product used for unknown indication
     Route: 058
     Dates: end: 20240726

REACTIONS (1)
  - Hypoxia [Not Recovered/Not Resolved]

NARRATIVE: CASE EVENT DATE: 20240806
